FAERS Safety Report 8497060-8 (Version None)
Quarter: 2012Q3

REPORT INFORMATION
  Report Type: 
  Country: None (occurrence: None)
  Receive Date: 20120709
  Receipt Date: 20120604
  Transmission Date: 20120928
  Serious: No
  Sender: FDA-Public Use
  Company Number: US-AMGEN-USASP2012033823

PATIENT
  Age: 64 Year
  Sex: Female

DRUGS (10)
  1. MAGNESIUM SULFATE [Concomitant]
  2. DYAZIDE [Concomitant]
     Dosage: UNK
  3. ENBREL [Suspect]
     Indication: ARTHROPATHY
  4. METOPROLOL [Concomitant]
     Dosage: UNK
  5. MULTI-VITAMINS [Concomitant]
     Dosage: UNK
  6. FISH OIL [Concomitant]
     Dosage: UNK
  7. ASPIRIN [Concomitant]
     Dosage: UNK
  8. ENBREL [Suspect]
     Indication: RHEUMATOID ARTHRITIS
     Dosage: 50 MG, QWK
     Dates: start: 20120301
  9. CITRACAL PLUS BONE DENSITY BUILDER [Concomitant]
     Dosage: UNK
  10. ULTRAM [Concomitant]
     Dosage: UNK

REACTIONS (7)
  - INJECTION SITE PAIN [None]
  - INJECTION SITE SWELLING [None]
  - INJECTION SITE DISCOLOURATION [None]
  - INJECTION SITE ERYTHEMA [None]
  - INJECTION SITE REACTION [None]
  - INJECTION SITE PRURITUS [None]
  - INJECTION SITE URTICARIA [None]
